FAERS Safety Report 8604654 (Version 2)
Quarter: 2012Q4

REPORT INFORMATION
  Report Type: 
  Country: GB (occurrence: GB)
  Receive Date: 20120608
  Receipt Date: 20120914
  Transmission Date: 20130627
  Serious: Yes (Disabling)
  Sender: FDA-Public Use
  Company Number: GB-ASTELLAS-2012EU003940

PATIENT
  Age: 72 Year
  Sex: Male

DRUGS (3)
  1. SOLIFENACIN [Suspect]
     Dosage: 5 mg, UID/QD
     Route: 048
     Dates: start: 20110809, end: 20120425
  2. ASPIRIN [Concomitant]
     Dosage: UNK
     Route: 065
  3. SIMVASTATIN [Concomitant]
     Dosage: UNK
     Route: 065

REACTIONS (5)
  - Dyspnoea [Recovered/Resolved]
  - Dry mouth [Recovered/Resolved]
  - Fatigue [Recovered/Resolved]
  - Productive cough [Recovered/Resolved]
  - Pulmonary fibrosis [Unknown]
